FAERS Safety Report 14567350 (Version 1)
Quarter: 2018Q1

REPORT INFORMATION
  Report Type: Spontaneous
  Country: US (occurrence: US)
  Receive Date: 20180223
  Receipt Date: 20180223
  Transmission Date: 20180509
  Serious: Yes (Hospitalization)
  Sender: FDA-Public Use
  Company Number: US-GUERBET-US-20180042

PATIENT
  Age: 63 Year
  Sex: Male

DRUGS (1)
  1. CONRAY [Suspect]
     Active Substance: IOTHALAMATE MEGLUMINE
     Indication: PRODUCT USED FOR UNKNOWN INDICATION
     Route: 037

REACTIONS (11)
  - Hallucination [Recovered/Resolved]
  - Seizure [Recovered/Resolved]
  - Pneumocephalus [Recovered/Resolved]
  - Aphasia [Recovered/Resolved]
  - Somnolence [Recovered/Resolved]
  - Disorientation [Recovered/Resolved]
  - Cerebral disorder [Recovered/Resolved]
  - Mental disorder [Recovered/Resolved]
  - Drug dispensing error [Recovered/Resolved]
  - Dyspnoea [Recovered/Resolved]
  - Staring [Recovered/Resolved]
